FAERS Safety Report 11253061 (Version 2)
Quarter: 2015Q3

REPORT INFORMATION
  Report Type: Spontaneous
  Country: DK (occurrence: None)
  Receive Date: 20150707
  Receipt Date: 20150923
  Transmission Date: 20151125
  Serious: Yes (Death, Hospitalization)
  Sender: FDA-Public Use
  Company Number: DK-2015-2810

PATIENT
  Age: 39 Year
  Sex: Female
  Weight: 90 kg

DRUGS (8)
  1. VINORELBINE INN (VINORELBINE TARTRATE) SOLUTION FOR INJECTION [Suspect]
     Active Substance: VINORELBINE TARTRATE
     Indication: LUNG NEOPLASM MALIGNANT
     Dosage: 6 CYCLES ADMINISTERED
     Dates: start: 20150104, end: 20150407
  2. PANTOPRAZOLE (PANTOPRAZOLE SODIUM SESQUIHYDRATE) [Concomitant]
  3. AVASTIN [Suspect]
     Active Substance: BEVACIZUMAB
     Indication: LUNG NEOPLASM MALIGNANT
     Dosage: CYCLICAL (1/21)
     Dates: start: 20150104, end: 20150407
  4. MALFIN (MORPHINE SULFATE) [Concomitant]
  5. CARBOPLATIN (CARBOPLATIN) [Suspect]
     Active Substance: CARBOPLATIN
     Indication: LUNG NEOPLASM MALIGNANT
     Dosage: CYCLICAL (1/21)
     Dates: start: 20150104, end: 20150330
  6. MORPHINE (MORPHINE SULFATE) [Concomitant]
     Active Substance: MORPHINE SULFATE
  7. PINEX (SULFOGAIACOL) [Concomitant]
  8. PREDNISOLONE. [Concomitant]
     Active Substance: PREDNISOLONE

REACTIONS (1)
  - Haemoptysis [None]
